FAERS Safety Report 7937171-6 (Version None)
Quarter: 2011Q4

REPORT INFORMATION
  Report Type: 
  Country: None (occurrence: None)
  Receive Date: 20111123
  Receipt Date: 20111116
  Transmission Date: 20120403
  Serious: Yes (Hospitalization)
  Sender: FDA-Public Use
  Company Number: US-GLAXOSMITHKLINE-A0871524A

PATIENT
  Age: 68 Year
  Sex: Male

DRUGS (1)
  1. AVANDIA [Suspect]
     Indication: DIABETES MELLITUS
     Dosage: 8MG PER DAY
     Route: 048
     Dates: start: 20010226, end: 20070601

REACTIONS (9)
  - CORONARY ARTERY DISEASE [None]
  - ACUTE MYOCARDIAL INFARCTION [None]
  - ASTHENIA [None]
  - EMOTIONAL DISTRESS [None]
  - FATIGUE [None]
  - MITRAL VALVE INCOMPETENCE [None]
  - MYOCARDIAL INFARCTION [None]
  - CARDIAC DISORDER [None]
  - TRICUSPID VALVE INCOMPETENCE [None]
